FAERS Safety Report 11109820 (Version 1)
Quarter: 2015Q2

REPORT INFORMATION
  Report Type: Spontaneous
  Country: DE (occurrence: DE)
  Receive Date: 20150513
  Receipt Date: 20150513
  Transmission Date: 20150821
  Serious: Yes (Other)
  Sender: FDA-Public Use
  Company Number: DE-JNJFOC-20150507887

PATIENT
  Age: 68 Year
  Sex: Female
  Weight: 70 kg

DRUGS (8)
  1. SALBUTAMOL [Suspect]
     Active Substance: ALBUTEROL
     Indication: RESPIRATORY TRACT INFECTION
     Route: 065
     Dates: start: 20150401
  2. KEIMAX [Suspect]
     Active Substance: CEFTIBUTEN
     Indication: INFECTION
     Route: 048
     Dates: start: 20150401, end: 20150406
  3. ATORVASTATIN [Concomitant]
     Active Substance: ATORVASTATIN
     Route: 048
     Dates: start: 2012
  4. SOLEDUM [Concomitant]
     Active Substance: EUCALYPTOL
     Indication: INFECTION
     Route: 065
     Dates: start: 20150306
  5. STANGYL [Concomitant]
     Active Substance: TRIMIPRAMINE MALEATE
     Indication: INSOMNIA
     Route: 048
     Dates: start: 2011
  6. XARELTO [Suspect]
     Active Substance: RIVAROXABAN
     Indication: ANTICOAGULANT THERAPY
     Route: 048
     Dates: start: 20150331, end: 20150401
  7. ASA [Concomitant]
     Active Substance: ASPIRIN
     Indication: ANTICOAGULANT THERAPY
     Route: 065
     Dates: start: 20150402
  8. VOCADO [Concomitant]
     Active Substance: AMLODIPINE BESYLATE\OLMESARTAN MEDOXOMIL
     Indication: HYPERTENSION
     Route: 048
     Dates: start: 20140722

REACTIONS (3)
  - Anosmia [Not Recovered/Not Resolved]
  - Haemorrhage [Unknown]
  - Ageusia [Not Recovered/Not Resolved]

NARRATIVE: CASE EVENT DATE: 20150401
